FAERS Safety Report 5375595-4 (Version None)
Quarter: 2007Q2

REPORT INFORMATION
  Report Type: 
  Country: None (occurrence: None)
  Receive Date: 20070629
  Receipt Date: 20070621
  Transmission Date: 20071010
  Serious: Yes (Other)
  Sender: FDA-Public Use
  Company Number: US-PFIZER INC-2007051761

PATIENT
  Age: 72 Year
  Sex: Male

DRUGS (1)
  1. NEURONTIN [Suspect]

REACTIONS (1)
  - PARALYSIS [None]
